FAERS Safety Report 21154853 (Version 1)
Quarter: 2022Q3

REPORT INFORMATION
  Report Type: Spontaneous
  Country: US (occurrence: US)
  Receive Date: 20220801
  Receipt Date: 20220801
  Transmission Date: 20221026
  Serious: Yes (Other)
  Sender: FDA-Public Use
  Company Number: US-JUTA GMBH-2011-12501

PATIENT
  Age: 84 Year
  Sex: Female

DRUGS (1)
  1. ALENDRONATE [Suspect]
     Active Substance: ALENDRONATE SODIUM
     Indication: Osteoporosis
     Dosage: 70 MG EVERY WEEK
     Route: 065

REACTIONS (3)
  - Oesophageal dilatation [Recovered/Resolved]
  - Oesophageal stenosis [Recovered/Resolved]
  - Oesophagitis [Recovered/Resolved]
